FAERS Safety Report 17956920 (Version 2)
Quarter: 2022Q1

REPORT INFORMATION
  Report Type: Spontaneous
  Country: FR (occurrence: FR)
  Receive Date: 20200629
  Receipt Date: 20220119
  Transmission Date: 20220423
  Serious: Yes (Hospitalization, Other)
  Sender: FDA-Public Use
  Company Number: FR-MEDAC-2020000944

PATIENT
  Age: 41 Year
  Sex: Female
  Weight: 85 kg

DRUGS (24)
  1. AMOXICILLIN [Suspect]
     Active Substance: AMOXICILLIN
     Indication: Product used for unknown indication
     Dosage: UNK
     Route: 065
  2. DOXORUBICIN [Suspect]
     Active Substance: DOXORUBICIN
     Indication: Hodgkin^s disease
     Dosage: 50 MILLIGRAM, CYCLICAL
     Route: 040
  3. DOXORUBICIN [Suspect]
     Active Substance: DOXORUBICIN
     Dosage: 25 MILLIGRAM/SQ. METER, CYCLICAL
     Route: 042
  4. LANSOPRAZOLE [Suspect]
     Active Substance: LANSOPRAZOLE
     Indication: Product used for unknown indication
     Dosage: 30 MILLIGRAM, ONCE A DAY
     Route: 065
  5. ONDANSETRON [Suspect]
     Active Substance: ONDANSETRON
     Indication: Product used for unknown indication
     Dosage: 8 MILLIGRAM, CYCLICAL
     Route: 040
  6. ONDANSETRON [Suspect]
     Active Substance: ONDANSETRON
     Dosage: 8 MILLIGRAM, CYCLICAL
     Route: 042
  7. PREDNISONE [Suspect]
     Active Substance: PREDNISONE
     Indication: Product used for unknown indication
     Dosage: 80 MILLIGRAM, ONCE A DAY (FIRST DOSE)
     Route: 065
  8. PREDNISONE [Suspect]
     Active Substance: PREDNISONE
     Dosage: 40 MILLIGRAM, ONCE A DAY
     Route: 065
  9. VALACYCLOVIR [Suspect]
     Active Substance: VALACYCLOVIR HYDROCHLORIDE
     Indication: Product used for unknown indication
     Dosage: 500 MILLIGRAM, ONCE A DAY
     Route: 065
  10. BLEOMYCIN [Suspect]
     Active Substance: BLEOMYCIN SULFATE
     Indication: Hodgkin^s disease
     Dosage: 19.8 MILLIGRAM, CYCLICAL
     Route: 040
     Dates: start: 20171108
  11. BLEOMYCIN [Suspect]
     Active Substance: BLEOMYCIN SULFATE
     Dosage: 10 MILLIGRAM/SQ. METER, CYCLICAL
     Route: 042
     Dates: start: 20171108
  12. DACARBAZINE [Suspect]
     Active Substance: DACARBAZINE
     Indication: Hodgkin^s disease
     Dosage: 750 MILLIGRAM, CYCLICAL
     Route: 041
     Dates: start: 20171108
  13. DACARBAZINE [Suspect]
     Active Substance: DACARBAZINE
     Dosage: 375 MILLIGRAM/SQ. METER, CYCLICAL
     Route: 042
     Dates: start: 20171108
  14. DEXAMETHASONE [Suspect]
     Active Substance: DEXAMETHASONE
     Indication: Product used for unknown indication
     Dosage: 10 MILLIGRAM, CYCLICAL
     Route: 040
     Dates: start: 20171108
  15. DEXAMETHASONE [Suspect]
     Active Substance: DEXAMETHASONE
     Dosage: 10 MILLIGRAM, CYCLICAL
     Route: 042
     Dates: start: 20171108
  16. ENOXAPARIN [Suspect]
     Active Substance: ENOXAPARIN
     Indication: Product used for unknown indication
     Dosage: 4000 INTERNATIONAL UNIT, TWO TIMES A DAY
     Route: 065
  17. ENOXAPARIN [Suspect]
     Active Substance: ENOXAPARIN
     Dosage: 4000 INTERNATIONAL UNIT, ONCE A DAY
     Route: 065
  18. DEXTROSE [Suspect]
     Active Substance: DEXTROSE
     Indication: Product used for unknown indication
     Dosage: 25 MILLILITER (5% 250 ML AS VEHICLE FOR DACARBAZINE; 28 DAY CYCLE VIA,
     Route: 042
     Dates: start: 20171108
  19. DEXTROSE [Suspect]
     Active Substance: DEXTROSE
     Dosage: 20 MILLILITER(5% 20 ML AS VEHICLE FOR DOXORUBICIN; 28 DAY CYCLE VIA,)
     Route: 042
     Dates: start: 2017
  20. DEXTROSE [Suspect]
     Active Substance: DEXTROSE
     Dosage: 20 MILLILITER(5% 20 ML AS VEHICLE FOR DOXORUBICIN; 28 DAY CYCLE VIA,
     Route: 042
     Dates: start: 20171108
  21. DEXTROSE [Suspect]
     Active Substance: DEXTROSE
     Dosage: 25 MILLILITER (5% 250 ML AS VEHICLE FOR DACARBAZINE; 28 DAY CYCLE VIA,
     Route: 042
     Dates: start: 2017
  22. SODIUM CHLORIDE [Suspect]
     Active Substance: SODIUM CHLORIDE
     Indication: Product used for unknown indication
     Dosage: 20 MILLILITER
     Route: 042
     Dates: start: 20171108
  23. VINBLASTINE [Suspect]
     Active Substance: VINBLASTINE
     Indication: Hodgkin^s disease
     Dosage: 10 MILLIGRAM, CYCLICAL
     Route: 040
     Dates: start: 20171108
  24. VINBLASTINE [Suspect]
     Active Substance: VINBLASTINE
     Dosage: 5 MILLIGRAM/SQ. METER, CYCLICAL
     Route: 042
     Dates: start: 20171108

REACTIONS (6)
  - Preterm premature rupture of membranes [Recovered/Resolved]
  - Caesarean section [Recovered/Resolved]
  - Exposure during pregnancy [Unknown]
  - Contraindicated product administered [Recovered/Resolved]
  - Maternal exposure during pregnancy [Recovered/Resolved]
  - Off label use [Unknown]

NARRATIVE: CASE EVENT DATE: 20170101
